FAERS Safety Report 6831985-1 (Version None)
Quarter: 2010Q3

REPORT INFORMATION
  Report Type: 
  Country: None (occurrence: None)
  Receive Date: 20100712
  Receipt Date: 20100630
  Transmission Date: 20110219
  Serious: Yes (Hospitalization, Other)
  Sender: FDA-Public Use
  Company Number: US-PFIZER INC-2010082473

PATIENT
  Sex: Male
  Weight: 25.9 kg

DRUGS (1)
  1. DILANTIN-125 [Suspect]
     Indication: CONVULSION
     Dosage: UNK
     Dates: end: 19910623

REACTIONS (17)
  - AGGRESSION [None]
  - CELLULITIS [None]
  - COLLAPSE OF LUNG [None]
  - CONJUNCTIVITIS [None]
  - CORNEAL INFECTION [None]
  - DEHYDRATION [None]
  - GASTROOESOPHAGEAL REFLUX DISEASE [None]
  - HYPONATRAEMIA [None]
  - LETHARGY [None]
  - NASOPHARYNGITIS [None]
  - NYSTAGMUS [None]
  - PNEUMONIA [None]
  - RESPIRATORY ARREST [None]
  - STEVENS-JOHNSON SYNDROME [None]
  - STOMATITIS [None]
  - SYMBLEPHARON [None]
  - VISUAL FIELD DEFECT [None]
